FAERS Safety Report 9519227 (Version 2)
Quarter: 2013Q3

REPORT INFORMATION
  Report Type: Spontaneous
  Country: US (occurrence: US)
  Receive Date: 20130912
  Receipt Date: 20130912
  Transmission Date: 20140515
  Serious: Yes (Other)
  Sender: FDA-Public Use
  Company Number: US-ELI_LILLY_AND_COMPANY-US201307003322

PATIENT
  Sex: Male
  Weight: 77.55 kg

DRUGS (6)
  1. HUMULIN 30% REGULAR, 70% NPH [Suspect]
     Indication: DIABETES MELLITUS
     Dosage: 16 U, BID
     Dates: start: 20130520
  2. DILTIAZEM [Concomitant]
  3. HYDROCHLOROTHIAZIDE [Concomitant]
  4. SIMVASTATIN [Concomitant]
  5. LOSARTAN [Concomitant]
  6. ASA [Concomitant]

REACTIONS (6)
  - Retinal haemorrhage [Recovering/Resolving]
  - Diabetic eye disease [Unknown]
  - Visual impairment [Unknown]
  - Vitreous floaters [Unknown]
  - Corneal abrasion [Unknown]
  - Retinopathy [Unknown]
